FAERS Safety Report 8540753-4 (Version None)
Quarter: 2012Q3

REPORT INFORMATION
  Report Type: 
  Country: None (occurrence: None)
  Receive Date: 20120726
  Receipt Date: 20120517
  Transmission Date: 20120928
  Serious: No
  Sender: FDA-Public Use
  Company Number: US-MYLANLABS-2012S1010358

PATIENT
  Age: 69 Year
  Sex: Male

DRUGS (7)
  1. ATENOLOL [Concomitant]
     Indication: BLOOD PRESSURE INCREASED
     Route: 048
  2. TESTOSTERONE [Concomitant]
     Indication: HORMONE REPLACEMENT THERAPY
     Route: 061
  3. LOPRESSOR [Concomitant]
     Indication: BLOOD PRESSURE INCREASED
     Route: 048
  4. FUROSEMIDE [Concomitant]
     Indication: BLOOD PRESSURE INCREASED
     Route: 048
  5. POTASSIUM CHLORIDE [Concomitant]
     Route: 048
  6. CLONIDINE [Suspect]
     Indication: BLOOD PRESSURE INCREASED
     Dosage: QW
     Route: 062
     Dates: start: 20120502
  7. M.V.I. [Concomitant]
     Indication: VITAMIN SUPPLEMENTATION
     Route: 048

REACTIONS (2)
  - DRUG EFFECT DECREASED [None]
  - BLOOD PRESSURE INCREASED [None]
